FAERS Safety Report 12210269 (Version 1)
Quarter: 2016Q1

REPORT INFORMATION
  Report Type: Spontaneous
  Country: US (occurrence: None)
  Receive Date: 20160324
  Receipt Date: 20160324
  Transmission Date: 20160526
  Serious: Yes (Life-Threatening, Hospitalization)
  Sender: FDA-Public Use
  Company Number: None

PATIENT
  Age: 15 Year
  Sex: Female
  Weight: 49.9 kg

DRUGS (4)
  1. SERTALINE HYDROCHLORIDE [Suspect]
     Active Substance: SERTRALINE HYDROCHLORIDE
     Indication: ANXIETY
     Dosage: 1 PILL AT BEDTIME TAKEN BY MOUTH
     Route: 048
     Dates: start: 20150420, end: 20150523
  2. IRON [Concomitant]
     Active Substance: IRON
  3. PRILOSEC [Concomitant]
     Active Substance: OMEPRAZOLE MAGNESIUM
  4. IBUPROFEN. [Suspect]
     Active Substance: IBUPROFEN

REACTIONS (8)
  - Wrong technique in product usage process [None]
  - Gastritis haemorrhagic [None]
  - Fall [None]
  - Loss of consciousness [None]
  - Chest pain [None]
  - Abdominal pain upper [None]
  - Pallor [None]
  - Dizziness [None]

NARRATIVE: CASE EVENT DATE: 20150524
